FAERS Safety Report 4734064-2 (Version None)
Quarter: 2005Q3

REPORT INFORMATION
  Report Type: 
  Country: None (occurrence: None)
  Receive Date: 20050804
  Receipt Date: 20050728
  Transmission Date: 20060218
  Serious: Yes (Disabling)
  Sender: FDA-Public Use
  Company Number: 2005UW11263

PATIENT
  Age: 62 Year
  Sex: Female

DRUGS (4)
  1. IRESSA [Suspect]
     Indication: NON-SMALL CELL LUNG CANCER
     Route: 048
     Dates: start: 20040726, end: 20050109
  2. CISPLATIN [Concomitant]
  3. VINORELBINE [Concomitant]
  4. RADIOTHERAPY [Concomitant]

REACTIONS (1)
  - GASTROINTESTINAL TOXICITY [None]
